FAERS Safety Report 21679911 (Version 1)
Quarter: 2022Q4

REPORT INFORMATION
  Report Type: Spontaneous
  Country: US (occurrence: US)
  Receive Date: 20221205
  Receipt Date: 20221205
  Transmission Date: 20230112
  Serious: Yes (Hospitalization, Other)
  Sender: FDA-Public Use
  Company Number: US-SUN PHARMACEUTICAL INDUSTRIES LTD-2022R1-366823

PATIENT
  Age: 61 Year
  Sex: Male

DRUGS (21)
  1. GABAPENTIN [Suspect]
     Active Substance: GABAPENTIN
     Indication: Pain in extremity
     Dosage: UNK
     Route: 065
  2. GABAPENTIN [Suspect]
     Active Substance: GABAPENTIN
     Indication: Rash
  3. DULOXETINE [Suspect]
     Active Substance: DULOXETINE
     Indication: Pain in extremity
     Dosage: UNK
     Route: 065
  4. DULOXETINE [Suspect]
     Active Substance: DULOXETINE
     Indication: Rash
  5. NORTRIPTYLINE [Suspect]
     Active Substance: NORTRIPTYLINE
     Indication: Pain in extremity
     Dosage: UNK
     Route: 065
  6. NORTRIPTYLINE [Suspect]
     Active Substance: NORTRIPTYLINE
     Indication: Rash
  7. OXYCODONE [Suspect]
     Active Substance: OXYCODONE
     Indication: Pain in extremity
     Dosage: UNK
     Route: 065
  8. OXYCODONE [Suspect]
     Active Substance: OXYCODONE
     Indication: Rash
  9. HYDROMORPHONE [Suspect]
     Active Substance: HYDROMORPHONE
     Indication: Pain in extremity
     Dosage: UNK
     Route: 065
  10. HYDROMORPHONE [Suspect]
     Active Substance: HYDROMORPHONE
     Indication: Rash
  11. EMLA [Suspect]
     Active Substance: LIDOCAINE\PRILOCAINE
     Indication: Pain in extremity
     Dosage: UNK
     Route: 061
  12. EMLA [Suspect]
     Active Substance: LIDOCAINE\PRILOCAINE
     Indication: Rash
  13. LIDOCAINE [Suspect]
     Active Substance: LIDOCAINE
     Indication: Pain in extremity
     Dosage: UNK
     Route: 061
  14. LIDOCAINE [Suspect]
     Active Substance: LIDOCAINE
     Indication: Rash
  15. KETAMINE [Suspect]
     Active Substance: KETAMINE
     Indication: Pain in extremity
     Dosage: UNK
     Route: 042
  16. KETAMINE [Suspect]
     Active Substance: KETAMINE
     Indication: Rash
  17. BUPIVACAINE [Suspect]
     Active Substance: BUPIVACAINE
     Indication: Pain in extremity
     Dosage: UNK
     Route: 008
  18. BUPIVACAINE [Suspect]
     Active Substance: BUPIVACAINE
     Indication: Rash
  19. DEXAMETHASONE [Suspect]
     Active Substance: DEXAMETHASONE
     Indication: Pain in extremity
     Dosage: UNK
     Route: 008
  20. DEXAMETHASONE [Suspect]
     Active Substance: DEXAMETHASONE
     Indication: Rash
  21. CAPSAICIN [Suspect]
     Active Substance: CAPSAICIN
     Indication: Product used for unknown indication
     Dosage: UNK
     Route: 061

REACTIONS (1)
  - Therapy non-responder [Unknown]
